FAERS Safety Report 5808370-4 (Version None)
Quarter: 2008Q3

REPORT INFORMATION
  Report Type: 
  Country: None (occurrence: None)
  Receive Date: 20080714
  Receipt Date: 20080702
  Transmission Date: 20090109
  Serious: Yes (Hospitalization, Other)
  Sender: FDA-Public Use
  Company Number: PHHO2008JP07340

PATIENT
  Sex: Female
  Weight: 44 kg

DRUGS (4)
  1. VAA489A [Suspect]
     Indication: ESSENTIAL HYPERTENSION
     Dosage: 80/5
     Dates: start: 20070709, end: 20080607
  2. DIOVAN T30230+TAB+HY [Suspect]
     Indication: ESSENTIAL HYPERTENSION
     Dosage: 80 MG, QD
     Route: 048
     Dates: start: 20070625, end: 20070708
  3. KARY UNI [Concomitant]
  4. TARIVID [Concomitant]

REACTIONS (15)
  - ARTERIOSCLEROSIS [None]
  - BALANCE DISORDER [None]
  - BRAIN OEDEMA [None]
  - CEREBELLAR INFARCTION [None]
  - CEREBRAL ARTERY OCCLUSION [None]
  - DYSARTHRIA [None]
  - DYSKINESIA [None]
  - DYSSTASIA [None]
  - GASTRITIS ATROPHIC [None]
  - GENERAL PHYSICAL CONDITION ABNORMAL [None]
  - HERNIA [None]
  - NAUSEA [None]
  - RENAL NEOPLASM [None]
  - URINARY TRACT INFECTION [None]
  - VOMITING [None]
